FAERS Safety Report 4867365-8 (Version None)
Quarter: 2005Q4

REPORT INFORMATION
  Report Type: 
  Country: None (occurrence: None)
  Receive Date: 20051223
  Receipt Date: 20051223
  Transmission Date: 20060501
  Serious: Yes (Other)
  Sender: FDA-Public Use
  Company Number: None

PATIENT
  Sex: Female
  Weight: 91.6266 kg

DRUGS (12)
  1. TARGRETIN [Suspect]
     Indication: THYROID CANCER METASTATIC
     Dosage: 768 MG=10 TABS  QD   PO
     Route: 048
     Dates: start: 20050808, end: 20051221
  2. SYNTHROID [Concomitant]
  3. LOVENOX [Concomitant]
  4. PREDNISON [Concomitant]
  5. LORAZEPAM [Concomitant]
  6. MEGACE [Concomitant]
  7. ARANESP [Concomitant]
  8. OXYCODONE [Concomitant]
  9. DURAGESIC-100 [Concomitant]
  10. ROXICET [Concomitant]
  11. PAROXETME [Concomitant]
  12. TAXOTERE [Concomitant]

REACTIONS (2)
  - HYPERTRIGLYCERIDAEMIA [None]
  - TREATMENT NONCOMPLIANCE [None]
